FAERS Safety Report 12946819 (Version 1)
Quarter: 2016Q4

REPORT INFORMATION
  Report Type: Spontaneous
  Country: JP (occurrence: JP)
  Receive Date: 20161116
  Receipt Date: 20161116
  Transmission Date: 20170207
  Serious: Yes (Other)
  Sender: FDA-Public Use
  Company Number: JP-GLAXOSMITHKLINE-JP2016JPN167370

PATIENT
  Sex: Male

DRUGS (1)
  1. ALLERMIST [Suspect]
     Active Substance: FLUTICASONE FUROATE
     Indication: RHINORRHOEA
     Dosage: 82.5 ?G, 1D
     Route: 045
     Dates: start: 2016

REACTIONS (4)
  - Intentional overdose [Unknown]
  - Arrhythmia [Unknown]
  - Brain natriuretic peptide increased [Unknown]
  - Therapeutic response decreased [Unknown]

NARRATIVE: CASE EVENT DATE: 20161102
